FAERS Safety Report 12565094 (Version 1)
Quarter: 2016Q3

REPORT INFORMATION
  Report Type: Spontaneous
  Country: US (occurrence: None)
  Receive Date: 20160715
  Receipt Date: 20160715
  Transmission Date: 20161109
  Serious: Yes (Other)
  Sender: FDA-Public Use
  Company Number: None

PATIENT
  Age: 11 Year
  Sex: Male
  Weight: 46.27 kg

DRUGS (1)
  1. RISPERIDONE, 0.5 MG MYLAN [Suspect]
     Active Substance: RISPERIDONE
     Indication: AUTISM SPECTRUM DISORDER
     Route: 048
     Dates: start: 20151203, end: 20160306

REACTIONS (7)
  - Formication [None]
  - Scratch [None]
  - Skin haemorrhage [None]
  - Abnormal behaviour [None]
  - Vomiting [None]
  - Dyskinesia [None]
  - Scab [None]

NARRATIVE: CASE EVENT DATE: 20160331
